FAERS Safety Report 20806476 (Version 2)
Quarter: 2022Q3

REPORT INFORMATION
  Report Type: Spontaneous
  Country: US (occurrence: US)
  Receive Date: 20220510
  Receipt Date: 20220805
  Transmission Date: 20221026
  Serious: No
  Sender: FDA-Public Use
  Company Number: US-ALLERGAN-2210740US

PATIENT
  Sex: Female

DRUGS (1)
  1. VUITY [Suspect]
     Active Substance: PILOCARPINE HYDROCHLORIDE
     Indication: Product used for unknown indication
     Dosage: ACTUAL; 2 GTT, QD T 9 IN THE MORNING
     Route: 047
     Dates: start: 20220221, end: 20220221

REACTIONS (2)
  - Vitreous floaters [Not Recovered/Not Resolved]
  - Photopsia [Recovered/Resolved]
